FAERS Safety Report 9170622 (Version 1)
Quarter: 2013Q1

REPORT INFORMATION
  Report Type: Spontaneous
  Country: US (occurrence: None)
  Receive Date: 20130308
  Receipt Date: 20130308
  Transmission Date: 20140127
  Serious: Yes (Life-Threatening)
  Sender: FDA-Public Use
  Company Number: 001489864A

PATIENT
  Age: 64 Year
  Sex: Female

DRUGS (4)
  1. MEANINGFUL BEAUTY CINDY CRAWFORD SKIN BRIGHTENING DECOLLETE AND NECK TREATMENT SPF 15 [Suspect]
     Dosage: ONCE DERMAL
     Dates: start: 20130221
  2. MEANINGFUL BEAUTY CINDY CRAWFORD SKIN BRIGHTENING DECOLLETE AND NECK TREATMENT SPF 15 [Suspect]
     Dates: start: 20130221
  3. ARMOUR THYROID [Concomitant]
  4. VALSARTAN [Concomitant]

REACTIONS (6)
  - Tongue dry [None]
  - Swollen tongue [None]
  - Throat tightness [None]
  - Paraesthesia [None]
  - Dyspnoea [None]
  - Palpitations [None]
